FAERS Safety Report 8922903 (Version 1)
Quarter: 2012Q4

REPORT INFORMATION
  Report Type: 
  Country: AU (occurrence: AU)
  Receive Date: 20121123
  Receipt Date: 20121123
  Transmission Date: 20130627
  Serious: Yes (Other)
  Sender: FDA-Public Use
  Company Number: PHHY2012AU089169

PATIENT
  Sex: Male

DRUGS (4)
  1. ACLASTA [Suspect]
     Dosage: 5 mg
     Route: 042
     Dates: start: 20101015
  2. ACLASTA [Suspect]
     Dosage: 5 mg
     Route: 042
     Dates: start: 20111103
  3. ACLASTA [Suspect]
     Dosage: 5 mg
     Route: 042
     Dates: start: 20121115
  4. WARFARIN [Concomitant]

REACTIONS (6)
  - Neoplasm [Unknown]
  - Fall [Unknown]
  - Rib fracture [Unknown]
  - Upper limb fracture [Unknown]
  - Excoriation [Unknown]
  - Heart rate increased [Unknown]
